FAERS Safety Report 7234136-7 (Version None)
Quarter: 2010Q4

REPORT INFORMATION
  Report Type: 
  Country: None (occurrence: None)
  Receive Date: 20101130
  Receipt Date: 20090902
  Transmission Date: 20110411
  Serious: Yes (Hospitalization)
  Sender: FDA-Public Use
  Company Number: 2009-189942-NL

PATIENT
  Age: 30 Year
  Sex: Female
  Weight: 88.4514 kg

DRUGS (5)
  1. NUVARING [Suspect]
     Indication: CONTRACEPTION
     Dates: start: 20060501, end: 20070131
  2. CELEBREX [Concomitant]
  3. SILVER SULFADIAZINE [Concomitant]
  4. TRIMETHOPRIM + SULFAMETHOXAZOLE [Concomitant]
  5. NAPROXEN [Concomitant]

REACTIONS (3)
  - FALL [None]
  - INTRACRANIAL VENOUS SINUS THROMBOSIS [None]
  - LUMBAR RADICULOPATHY [None]
